FAERS Safety Report 21358031 (Version 1)
Quarter: 2022Q3

REPORT INFORMATION
  Report Type: Report from Study
  Country: DE (occurrence: DE)
  Receive Date: 20220921
  Receipt Date: 20220921
  Transmission Date: 20221027
  Serious: Yes (Other)
  Sender: FDA-Public Use
  Company Number: DE-TEVA-2022-DE-2073900

PATIENT
  Age: 46 Year
  Sex: Female

DRUGS (1)
  1. COPAXONE [Suspect]
     Active Substance: GLATIRAMER ACETATE
     Indication: Multiple sclerosis
     Dosage: 20 MILLIGRAM DAILY;
     Route: 065
     Dates: start: 20180901

REACTIONS (2)
  - Injection site inflammation [Recovered/Resolved]
  - Injection site discharge [Recovered/Resolved]

NARRATIVE: CASE EVENT DATE: 20220101
